FAERS Safety Report 6785647-X (Version None)
Quarter: 2010Q2

REPORT INFORMATION
  Report Type: 
  Country: None (occurrence: None)
  Receive Date: 20100623
  Receipt Date: 20100616
  Transmission Date: 20101027
  Serious: Yes (Other)
  Sender: FDA-Public Use
  Company Number: US-JNJFOC-20091101730

PATIENT
  Sex: Female

DRUGS (4)
  1. LEVAQUIN [Suspect]
     Indication: NEPHRITIS
     Route: 048
  2. LEVAQUIN [Suspect]
     Indication: KIDNEY INFECTION
     Route: 048
  3. LEVAQUIN [Suspect]
     Indication: CYSTITIS
     Route: 048
  4. LEVAQUIN [Suspect]
     Route: 048

REACTIONS (6)
  - BACK PAIN [None]
  - BLADDER DISORDER [None]
  - DEPRESSION [None]
  - TENDON DISORDER [None]
  - TENDON RUPTURE [None]
  - TENDONITIS [None]
